FAERS Safety Report 9779934 (Version 1)
Quarter: 2013Q4

REPORT INFORMATION
  Report Type: Spontaneous
  Country: US (occurrence: US)
  Receive Date: 20131223
  Receipt Date: 20131223
  Transmission Date: 20140711
  Serious: Yes (Other)
  Sender: FDA-Public Use
  Company Number: US-009507513-1312USA009840

PATIENT
  Age: 89 Year
  Sex: Female

DRUGS (2)
  1. MIRALAX [Suspect]
     Indication: ABDOMINAL SYMPTOM
     Route: 048
  2. MIRALAX [Suspect]
     Indication: ABDOMINAL SYMPTOM

REACTIONS (1)
  - Hysterectomy [Unknown]
